FAERS Safety Report 8577527-4 (Version None)
Quarter: 2012Q3

REPORT INFORMATION
  Report Type: 
  Country: None (occurrence: None)
  Receive Date: 20120725
  Receipt Date: 20120709
  Transmission Date: 20120928
  Serious: Yes (Hospitalization)
  Sender: FDA-Public Use
  Company Number: DSA_58581_2012

PATIENT
  Sex: Male
  Weight: 66 kg

DRUGS (8)
  1. MINIPRESS [Suspect]
     Indication: PRODUCT USED FOR UNKNOWN INDICATION
     Dosage: 25 MG ORAL
     Route: 048
     Dates: start: 20120611, end: 20120611
  2. ENALAPRIL MALEATE AND HYDROCHLOROTHIAZIDE [Suspect]
     Indication: PRODUCT USED FOR UNKNOWN INDICATION
     Dosage: 7 DF ORAL
     Route: 048
     Dates: start: 20120611, end: 20120611
  3. SITAGLIPTIN PHOSPHATE [Suspect]
     Indication: PRODUCT USED FOR UNKNOWN INDICATION
     Dosage: 700 MG ORAL
     Dates: start: 20120611, end: 20120611
  4. AMLODIPINE BESYLATE [Suspect]
     Indication: PRODUCT USED FOR UNKNOWN INDICATION
     Dosage: 35 MG ORAL
     Route: 048
     Dates: start: 20120611, end: 20120611
  5. AMARYL [Suspect]
     Indication: PRODUCT USED FOR UNKNOWN INDICATION
     Dosage: 28 MG ORAL
     Route: 048
     Dates: start: 20120611, end: 20120611
  6. LIPANOR (LIPANOR-CIPROFIBRATE) 100 MG (NOT SPECIFIED) [Suspect]
     Indication: PRODUCT USED FOR UNKNOWN INDICATION
     Dosage: ORAL
     Route: 048
     Dates: start: 20120611, end: 20120611
  7. GLUCOPHAGE [Suspect]
     Indication: PRODUCT USED FOR UNKNOWN INDICATION
     Dosage: 7 G ORAL
     Route: 047
     Dates: start: 20120611, end: 20120611
  8. ZOLOFT [Suspect]
     Indication: PRODUCT USED FOR UNKNOWN INDICATION
     Dosage: 7 DF ORAL
     Route: 048
     Dates: start: 20120611, end: 20120611

REACTIONS (8)
  - SELF-MEDICATION [None]
  - HYPOGLYCAEMIA [None]
  - HYPOKALAEMIA [None]
  - METABOLIC ACIDOSIS [None]
  - TACHYCARDIA [None]
  - TOXICITY TO VARIOUS AGENTS [None]
  - FALL [None]
  - BLOOD PRESSURE DIASTOLIC DECREASED [None]
